FAERS Safety Report 15093354 (Version 2)
Quarter: 2018Q3

REPORT INFORMATION
  Report Type: Spontaneous
  Country: IT (occurrence: IT)
  Receive Date: 20180629
  Receipt Date: 20180704
  Transmission Date: 20181010
  Serious: Yes (Hospitalization)
  Sender: FDA-Public Use
  Company Number: IT-TEVA-2018-IT-916757

PATIENT
  Age: 52 Year
  Sex: Male

DRUGS (7)
  1. RAMIPRIL/IDROCLOROTIAZIDE [Concomitant]
     Route: 048
  2. METFORMIN [Suspect]
     Active Substance: METFORMIN HYDROCHLORIDE
     Indication: TYPE 1 DIABETES MELLITUS
     Dosage: 500 MILLIGRAM DAILY;
     Route: 048
     Dates: start: 20170101, end: 20170621
  3. LYRICA [Concomitant]
     Active Substance: PREGABALIN
  4. TRESIBA [Suspect]
     Active Substance: INSULIN DEGLUDEC
     Indication: TYPE 1 DIABETES MELLITUS
     Dosage: 3 IU (INTERNATIONAL UNIT) DAILY;
     Route: 058
     Dates: start: 20170101, end: 20170621
  5. NOVORAPID [Suspect]
     Active Substance: INSULIN ASPART
     Indication: TYPE 1 DIABETES MELLITUS
     Dosage: 30 IU (INTERNATIONAL UNIT) DAILY;
     Route: 058
     Dates: start: 20170101, end: 20170621
  6. DOXAZOSIN [Concomitant]
     Active Substance: DOXAZOSIN\DOXAZOSIN MESYLATE
     Route: 065
  7. ASCRIPTIN [Concomitant]
     Active Substance: ASPIRIN

REACTIONS (2)
  - Sopor [Unknown]
  - Head injury [Unknown]

NARRATIVE: CASE EVENT DATE: 20170621
